FAERS Safety Report 5680041-7 (Version None)
Quarter: 2008Q1

REPORT INFORMATION
  Report Type: 
  Country: None (occurrence: None)
  Receive Date: 20080325
  Receipt Date: 20080325
  Transmission Date: 20080703
  Serious: Yes (Other)
  Sender: FDA-Public Use
  Company Number: None

PATIENT
  Age: 47 Year
  Sex: Female
  Weight: 49.8957 kg

DRUGS (1)
  1. BONIVA [Suspect]
     Indication: OSTEOPENIA
     Dosage: 1  MONTH
     Dates: start: 20070901, end: 20071001

REACTIONS (3)
  - ABDOMINAL PAIN UPPER [None]
  - ARTHRALGIA [None]
  - MYALGIA [None]
